FAERS Safety Report 8231392-3 (Version None)
Quarter: 2012Q1

REPORT INFORMATION
  Report Type: 
  Country: None (occurrence: None)
  Receive Date: 20120323
  Receipt Date: 20120308
  Transmission Date: 20120608
  Serious: No
  Sender: FDA-Public Use
  Company Number: US-ENDO PHARMACEUTICALS INC.-OPER20120331

PATIENT
  Sex: Male

DRUGS (3)
  1. OPANA ER [Suspect]
     Route: 048
  2. OPANA [Concomitant]
     Indication: BREAKTHROUGH PAIN
     Dosage: 5 MG
     Route: 048
  3. OPANA ER [Suspect]
     Indication: PAIN
     Route: 048

REACTIONS (1)
  - DRUG INEFFECTIVE [None]
